FAERS Safety Report 7414429-0 (Version None)
Quarter: 2011Q2

REPORT INFORMATION
  Report Type: 
  Country: None (occurrence: None)
  Receive Date: 20110414
  Receipt Date: 20110408
  Transmission Date: 20111010
  Serious: Yes (Disabling)
  Sender: FDA-Public Use
  Company Number: BR-BAYER-2011-030905

PATIENT
  Age: 26 Year
  Sex: Female

DRUGS (6)
  1. INTERFERON BETA-1B [Suspect]
     Indication: MULTIPLE SCLEROSIS
     Dosage: 9.6 MIU, QOD
     Route: 058
  2. PREDNISONE [Concomitant]
     Indication: MULTIPLE SCLEROSIS
     Dosage: 1 DF, QD
     Route: 048
     Dates: start: 20080101
  3. CARBAMAZEPINE [Concomitant]
     Indication: MUSCLE SPASMS
     Dosage: 1 DF, QD
     Route: 048
     Dates: start: 20090101
  4. CALCIUM [Concomitant]
     Indication: BONE DISORDER
     Dosage: 1 DF, QD
     Route: 048
     Dates: start: 20080101
  5. VITAMIN A AND D [Concomitant]
     Indication: VITAMIN SUPPLEMENTATION
     Dosage: 2 GTT, QD
     Route: 048
     Dates: start: 20080101
  6. OMEPRAZOLE [Concomitant]
     Indication: GASTRIC DISORDER
     Dosage: 1 DF, QD
     Route: 048
     Dates: start: 20080101

REACTIONS (3)
  - ABASIA [None]
  - PYREXIA [None]
  - MUSCULAR WEAKNESS [None]
